FAERS Safety Report 9375409 (Version 1)
Quarter: 2013Q2

REPORT INFORMATION
  Report Type: Report from Study
  Country: US (occurrence: US)
  Receive Date: 20130628
  Receipt Date: 20130628
  Transmission Date: 20140414
  Serious: Yes (Hospitalization, Other)
  Sender: FDA-Public Use
  Company Number: US-ABBOTT-13P-163-1107485-00

PATIENT
  Age: 44 Year
  Sex: Male
  Weight: 92.62 kg

DRUGS (3)
  1. HUMIRA [Suspect]
     Indication: CROHN^S DISEASE
     Dates: start: 20130607, end: 20130607
  2. IMURAN [Concomitant]
     Indication: CROHN^S DISEASE
     Dates: start: 201301
  3. PREVACID [Concomitant]
     Indication: PRODUCT USED FOR UNKNOWN INDICATION

REACTIONS (9)
  - Intestinal stenosis [Unknown]
  - Intestinal perforation [Unknown]
  - Pyrexia [Unknown]
  - Influenza like illness [Unknown]
  - Intestinal mass [Recovered/Resolved]
  - Inflammation [Recovered/Resolved]
  - Purulence [Unknown]
  - Abscess intestinal [Recovered/Resolved]
  - Intestinal obstruction [Recovered/Resolved]
